FAERS Safety Report 8877624 (Version 1)
Quarter: 2012Q4

REPORT INFORMATION
  Report Type: Spontaneous
  Country: US (occurrence: None)
  Receive Date: 20121026
  Receipt Date: 20121026
  Transmission Date: 20130627
  Serious: Yes (Other)
  Sender: FDA-Public Use
  Company Number: AUR-APL-2012-04515

PATIENT
  Age: 60 Year
  Sex: Male

DRUGS (2)
  1. RIBAVIRIN [Suspect]
     Indication: HEPATITIS C
     Dosage: (1000 mg, 1 D), Unknown
  2. PEGASYS [Suspect]
     Indication: HEPATITIS C
     Dosage: (180 mcg) , Unknown

REACTIONS (3)
  - Leukopenia [None]
  - Thrombocytopenia [None]
  - Anaemia [None]
